FAERS Safety Report 23237768 (Version 1)
Quarter: 2023Q4

REPORT INFORMATION
  Report Type: Spontaneous
  Country: US (occurrence: US)
  Receive Date: 20231128
  Receipt Date: 20231128
  Transmission Date: 20240109
  Serious: Yes (Other)
  Sender: FDA-Public Use
  Company Number: US-BRISTOL-MYERS SQUIBB COMPANY-2023-169374

PATIENT
  Age: 14 Year
  Sex: Female

DRUGS (1)
  1. KENALOG [Suspect]
     Active Substance: TRIAMCINOLONE ACETONIDE
     Indication: Slipping rib syndrome
     Dosage: 3 INJECTIONS OF KENALOG 40  MG/ML
     Route: 014
     Dates: end: 201906

REACTIONS (4)
  - Cushing^s syndrome [Unknown]
  - Blood corticotrophin decreased [Unknown]
  - Cortisol decreased [Unknown]
  - Off label use [Unknown]
